FAERS Safety Report 8881607 (Version 2)
Quarter: 2013Q2

REPORT INFORMATION
  Report Type: Spontaneous
  Country: US (occurrence: US)
  Receive Date: 20121101
  Receipt Date: 20130509
  Transmission Date: 20140414
  Serious: Yes (Death)
  Sender: FDA-Public Use
  Company Number: US-PFIZER INC-2012269072

PATIENT
  Age: 62 Year
  Sex: Male

DRUGS (2)
  1. INLYTA [Suspect]
     Dosage: 5 MG, 1 TABLET (5MG) TWICE A DAY
     Dates: start: 20120927
  2. INLYTA [Suspect]
     Dosage: 5 MG, 1 TABLET (5MG) TWICE A DAY
     Dates: start: 20121002

REACTIONS (4)
  - Death [Fatal]
  - Dyspnoea [Unknown]
  - Muscular weakness [Unknown]
  - Blood glucose fluctuation [Unknown]
